FAERS Safety Report 8068117-0 (Version None)
Quarter: 2012Q1

REPORT INFORMATION
  Report Type: 
  Country: None (occurrence: None)
  Receive Date: 20120124
  Receipt Date: 20110920
  Transmission Date: 20120608
  Serious: No
  Sender: FDA-Public Use
  Company Number: US-AMGEN-USASP2011048727

PATIENT
  Sex: Female

DRUGS (1)
  1. PROLIA [Suspect]
     Indication: OSTEOPOROSIS POSTMENOPAUSAL
     Dosage: UNK
     Dates: start: 20110701

REACTIONS (8)
  - HEADACHE [None]
  - SKIN EXFOLIATION [None]
  - VOMITING [None]
  - ERYTHEMA [None]
  - ABDOMINAL PAIN UPPER [None]
  - DIARRHOEA [None]
  - BONE PAIN [None]
  - RASH [None]
